FAERS Safety Report 8627341 (Version 2)
Quarter: 2013Q1

REPORT INFORMATION
  Report Type: Spontaneous
  Country: US (occurrence: US)
  Receive Date: 20120621
  Receipt Date: 20130121
  Transmission Date: 20140127
  Serious: No
  Sender: FDA-Public Use
  Company Number: US-BIOGENIDEC-2012BI021026

PATIENT
  Sex: Female

DRUGS (1)
  1. AVONEX [Suspect]
     Indication: MULTIPLE SCLEROSIS
     Route: 030
     Dates: start: 20101024

REACTIONS (7)
  - Varicose vein [Not Recovered/Not Resolved]
  - Weight bearing difficulty [Recovered/Resolved]
  - Hypoaesthesia [Unknown]
  - General symptom [Unknown]
  - Drug dose omission [Unknown]
  - Muscle spasms [Recovered/Resolved]
  - Paraesthesia [Unknown]
